FAERS Safety Report 8334241-8 (Version None)
Quarter: 2012Q2

REPORT INFORMATION
  Report Type: 
  Country: None (occurrence: None)
  Receive Date: 20120503
  Receipt Date: 20120502
  Transmission Date: 20120825
  Serious: Yes (Hospitalization)
  Sender: FDA-Public Use
  Company Number: GB-GLAXOSMITHKLINE-B0799167A

PATIENT
  Age: 14 Year
  Sex: Female
  Weight: 59.05 kg

DRUGS (5)
  1. PIZOTIFEN [Concomitant]
     Dosage: 1.5MG PER DAY
     Dates: start: 20120101
  2. MONTELUKAST [Concomitant]
     Dosage: 5MG PER DAY
  3. ACETAMINOPHEN [Concomitant]
     Dosage: 500MG AS REQUIRED
  4. SUMATRIPTAN [Suspect]
     Indication: MIGRAINE
     Route: 048
     Dates: start: 20120420
  5. SYMBICORT [Concomitant]
     Dosage: 4IUAX PER DAY

REACTIONS (5)
  - DYSPNOEA [None]
  - HYPOAESTHESIA [None]
  - GAIT DISTURBANCE [None]
  - NECK PAIN [None]
  - CHEST DISCOMFORT [None]
